FAERS Safety Report 5256211-9 (Version None)
Quarter: 2007Q1

REPORT INFORMATION
  Report Type: 
  Country: None (occurrence: None)
  Receive Date: 20070306
  Receipt Date: 20070222
  Transmission Date: 20070707
  Serious: Yes (Other)
  Sender: FDA-Public Use
  Company Number: PHBS2007BR02910

PATIENT
  Age: 25 Year
  Sex: Female

DRUGS (2)
  1. TRILEPTAL [Suspect]
     Indication: BIPOLAR II DISORDER
     Dosage: 300 MG, BID
     Route: 048
     Dates: start: 20061117, end: 20061215
  2. TOPAMAX [Suspect]

REACTIONS (3)
  - ANOREXIA [None]
  - GALACTORRHOEA [None]
  - WEIGHT DECREASED [None]
